FAERS Safety Report 8154650-X (Version None)
Quarter: 2012Q1

REPORT INFORMATION
  Report Type: 
  Country: None (occurrence: None)
  Receive Date: 20120221
  Receipt Date: 20120215
  Transmission Date: 20120608
  Serious: Yes (Hospitalization)
  Sender: FDA-Public Use
  Company Number: BR-PFIZER INC-2012041605

PATIENT
  Age: 57 Year
  Sex: Female

DRUGS (3)
  1. PHARMATON [Concomitant]
     Dosage: UNK
  2. ISOFLAVONE [Concomitant]
     Dosage: UNK
  3. LYRICA [Suspect]
     Indication: SURGERY
     Dosage: 75 MG, 2X/DAY
     Route: 048
     Dates: start: 20100215

REACTIONS (1)
  - ARTHROPATHY [None]
